FAERS Safety Report 16243781 (Version 1)
Quarter: 2019Q2

REPORT INFORMATION
  Report Type: Spontaneous
  Country: IN (occurrence: IN)
  Receive Date: 20190425
  Receipt Date: 20190425
  Transmission Date: 20190711
  Serious: Yes (Hospitalization)
  Sender: FDA-Public Use
  Company Number: None

PATIENT
  Age: 61 Year
  Sex: Female
  Weight: 61 kg

DRUGS (7)
  1. ANTOXID [Concomitant]
  2. CRANBERRY EXTRACT [Concomitant]
     Active Substance: CRANBERRY JUICE
  3. CREON [Suspect]
     Active Substance: PANCRELIPASE AMYLASE\PANCRELIPASE LIPASE\PANCRELIPASE PROTEASE
     Indication: PANCREATIC ENZYME REPLACEMENT THERAPY
     Route: 048
     Dates: start: 20180910, end: 20180910
  4. NEBICARD [Concomitant]
     Active Substance: NEBIVOLOL HYDROCHLORIDE
  5. EZEDOC [Concomitant]
  6. DEPLATT A [Concomitant]
  7. ROSUVAS [Concomitant]

REACTIONS (3)
  - Dyspnoea [None]
  - Urticaria [None]
  - Angioedema [None]

NARRATIVE: CASE EVENT DATE: 20180910
